FAERS Safety Report 14143759 (Version 1)
Quarter: 2017Q4

REPORT INFORMATION
  Report Type: Spontaneous
  Country: None (occurrence: US)
  Receive Date: 20171031
  Receipt Date: 20171031
  Transmission Date: 20180321
  Serious: Yes (Hospitalization)
  Sender: FDA-Public Use
  Company Number: US-ENDO PHARMACEUTICALS INC-2017-005740

PATIENT
  Sex: Female
  Weight: 55.34 kg

DRUGS (1)
  1. HYDROCORTISONE TABLETS 5MG [Suspect]
     Active Substance: HYDROCORTISONE
     Indication: ADDISON^S DISEASE
     Dosage: 40 MG, 20MG IN THE MORNING, 10MG AT NOON AND 10 MG AT BEDTIME
     Route: 048
     Dates: end: 2017

REACTIONS (3)
  - Chest pain [Unknown]
  - Gluten sensitivity [Recovered/Resolved]
  - Arrhythmia [Unknown]

NARRATIVE: CASE EVENT DATE: 201302
